FAERS Safety Report 16364564 (Version 1)
Quarter: 2019Q2

REPORT INFORMATION
  Report Type: Spontaneous
  Country: US (occurrence: US)
  Receive Date: 20190528
  Receipt Date: 20190528
  Transmission Date: 20190711
  Serious: Yes (Hospitalization, Other)
  Sender: FDA-Public Use
  Company Number: US-AMGEN-USASP2019081829

PATIENT

DRUGS (1)
  1. FILGRASTIM [Suspect]
     Active Substance: FILGRASTIM
     Indication: NEUTROPENIA
     Dosage: UNK (300 OR 400 MCG)
     Route: 058

REACTIONS (5)
  - Malaise [Unknown]
  - Off label use [Unknown]
  - Myalgia [Unknown]
  - Fatigue [Unknown]
  - Neutropenia [Unknown]
